FAERS Safety Report 21623787 (Version 1)
Quarter: 2022Q4

REPORT INFORMATION
  Report Type: Spontaneous
  Country: US (occurrence: None)
  Receive Date: 20221119
  Receipt Date: 20221119
  Transmission Date: 20230113
  Serious: No
  Sender: FDA-Public Use
  Company Number: None

PATIENT
  Sex: Male
  Weight: 130.63 kg

DRUGS (40)
  1. NEUPOGEN [Suspect]
     Active Substance: FILGRASTIM
     Indication: Lung carcinoma cell type unspecified stage 0
     Dosage: 480MCG (IF ANC { 1500 FOR 3 DAYS SQ- 21 DAY CYCLE?
     Route: 058
  2. ALIMTA [Suspect]
     Active Substance: PEMETREXED DISODIUM
     Indication: Lung carcinoma cell type unspecified stage 0
     Dosage: 1270MG  Q 21 DAYS IV?
     Route: 042
  3. ALBUTEROL [Concomitant]
     Active Substance: ALBUTEROL
  4. AMLODIPINE [Concomitant]
     Active Substance: AMLODIPINE BESYLATE
  5. AMIODARONE [Concomitant]
     Active Substance: AMIODARONE
  6. BETAMETHASONE [Concomitant]
     Active Substance: BETAMETHASONE
  7. BETAMETHASONE [Concomitant]
     Active Substance: BETAMETHASONE
  8. BROVANA [Concomitant]
     Active Substance: ARFORMOTEROL TARTRATE
  9. BUDESONIDE [Concomitant]
  10. CINNAMON [Concomitant]
     Active Substance: CINNAMON
  11. DEXAMETHASONE [Concomitant]
     Active Substance: DEXAMETHASONE
  12. DYMISTA [Concomitant]
     Active Substance: AZELASTINE HYDROCHLORIDE\FLUTICASONE PROPIONATE
  13. ELIQUIS [Concomitant]
     Active Substance: APIXABAN
  14. EPIPEN [Concomitant]
     Active Substance: EPINEPHRINE
  15. Fasasteride [Concomitant]
  16. FOLIC ACID [Concomitant]
     Active Substance: FOLIC ACID
  17. FUROSEMIDE [Concomitant]
     Active Substance: FUROSEMIDE
  18. Ipratropium and Albuterol [Concomitant]
  19. LANTUS SOLOSTAR [Concomitant]
     Active Substance: INSULIN GLARGINE
  20. LIPITOR [Concomitant]
     Active Substance: ATORVASTATIN CALCIUM
  21. LYRICA [Concomitant]
     Active Substance: PREGABALIN
  22. LYRICA [Concomitant]
     Active Substance: PREGABALIN
  23. MAGNESIUM OXIDE [Concomitant]
     Active Substance: MAGNESIUM OXIDE
  24. METOPROLOL [Concomitant]
     Active Substance: METOPROLOL
  25. NATEGLINIDE [Concomitant]
     Active Substance: NATEGLINIDE
  26. NITROSTAT [Concomitant]
     Active Substance: NITROGLYCERIN
  27. ONDANSETRON [Concomitant]
     Active Substance: ONDANSETRON
  28. OXYBUTYNIN [Concomitant]
     Active Substance: OXYBUTYNIN
  29. PANTOPRAZOLE [Concomitant]
     Active Substance: PANTOPRAZOLE
  30. PERCOCET [Concomitant]
     Active Substance: ACETAMINOPHEN\OXYCODONE HYDROCHLORIDE
  31. PLAVIX [Concomitant]
     Active Substance: CLOPIDOGREL BISULFATE
  32. PROCRIT [Concomitant]
     Active Substance: ERYTHROPOIETIN
  33. RANEXA [Concomitant]
     Active Substance: RANOLAZINE
  34. TAMSULOSIN [Concomitant]
     Active Substance: TAMSULOSIN
  35. VITAMIN B12 [Concomitant]
     Active Substance: CYANOCOBALAMIN
  36. VITAMIN C [Concomitant]
     Active Substance: ASCORBIC ACID
  37. VITAMIN D3 [Concomitant]
     Active Substance: CHOLECALCIFEROL
  38. YUPELRI [Concomitant]
     Active Substance: REVEFENACIN
  39. ZINC GLUCONATE [Concomitant]
     Active Substance: ZINC GLUCONATE
  40. ZOFRAN [Concomitant]
     Active Substance: ONDANSETRON HYDROCHLORIDE

REACTIONS (3)
  - Adverse drug reaction [None]
  - Drug intolerance [None]
  - Immune thrombocytopenia [None]
